FAERS Safety Report 4999965-9 (Version None)
Quarter: 2006Q2

REPORT INFORMATION
  Report Type: 
  Country: None (occurrence: None)
  Receive Date: 20060510
  Receipt Date: 20060510
  Transmission Date: 20061013
  Serious: No
  Sender: FDA-Public Use
  Company Number: None

PATIENT

DRUGS (1)
  1. LISINOPRIL [Suspect]
     Indication: HYPERTENSION
     Dosage: DAILY
     Dates: start: 20051101, end: 20060401

REACTIONS (1)
  - BLOOD PRESSURE INADEQUATELY CONTROLLED [None]
